FAERS Safety Report 7362105-5 (Version None)
Quarter: 2011Q1

REPORT INFORMATION
  Report Type: 
  Country: None (occurrence: None)
  Receive Date: 20110318
  Receipt Date: 20110314
  Transmission Date: 20110831
  Serious: Yes (Other)
  Sender: FDA-Public Use
  Company Number: JP-PFIZER INC-2011004192

PATIENT
  Age: 45 Year
  Sex: Male

DRUGS (4)
  1. SULPIRIDE [Concomitant]
     Dosage: 50 MG, 2X/DAY
     Route: 048
  2. TOLEDOMIN [Concomitant]
     Dosage: 50 MG, 3X/DAY
     Route: 048
  3. CHAMPIX [Suspect]
     Dosage: 1 MG, 1X/DAY
     Route: 048
     Dates: start: 20101020, end: 20101220
  4. CONSTAN [Concomitant]
     Dosage: 0.8 MG, 2X/DAY
     Route: 048

REACTIONS (4)
  - AGGRESSION [None]
  - ABNORMAL BEHAVIOUR [None]
  - ALCOHOL INTERACTION [None]
  - MOOD ALTERED [None]
